FAERS Safety Report 19076478 (Version 1)
Quarter: 2021Q1

REPORT INFORMATION
  Report Type: Other
  Country: CA (occurrence: CA)
  Receive Date: 20210331
  Receipt Date: 20210331
  Transmission Date: 20210420
  Serious: Yes (Other)
  Sender: FDA-Public Use
  Company Number: CA-GLENMARK PHARMACEUTICALS-2021GMK052987

PATIENT

DRUGS (4)
  1. GABAPENTIN. [Suspect]
     Active Substance: GABAPENTIN
     Indication: MIGRAINE
     Dosage: 600 MILLIGRAM
     Route: 065
  2. ERENUMAB AOOE [Interacting]
     Active Substance: ERENUMAB-AOOE
     Indication: MIGRAINE
     Dosage: UNK
     Route: 065
  3. ZOPICLONE [Interacting]
     Active Substance: ZOPICLONE
     Indication: PRODUCT USED FOR UNKNOWN INDICATION
     Dosage: UNK
     Route: 065
  4. TOPAMAX [Interacting]
     Active Substance: TOPIRAMATE
     Indication: PRODUCT USED FOR UNKNOWN INDICATION
     Dosage: UNK
     Route: 065

REACTIONS (11)
  - Drug ineffective [Unknown]
  - Product use in unapproved indication [Unknown]
  - Blood pressure increased [Recovered/Resolved]
  - Drug interaction [Unknown]
  - Feeling hot [Recovered/Resolved]
  - Mental impairment [Recovered/Resolved]
  - Panic attack [Recovered/Resolved]
  - Diarrhoea [Recovered/Resolved]
  - Amnesia [Recovered/Resolved]
  - Aphasia [Recovered/Resolved]
  - Hyperhidrosis [Recovered/Resolved]
